FAERS Safety Report 9700788 (Version 5)
Quarter: 2014Q1

REPORT INFORMATION
  Report Type: Report from Study
  Country: DE (occurrence: DE)
  Receive Date: 20131121
  Receipt Date: 20140221
  Transmission Date: 20141002
  Serious: Yes (Life-Threatening, Hospitalization)
  Sender: FDA-Public Use
  Company Number: DE-AMGEN-DEUCT2013082203

PATIENT
  Age: 18 Year
  Sex: Male
  Weight: 83 kg

DRUGS (3)
  1. ETANERCEPT [Suspect]
     Indication: JUVENILE IDIOPATHIC ARTHRITIS
     Dosage: 50 MG, WEEKLY
     Route: 065
     Dates: start: 20070605, end: 20100225
  2. ETANERCEPT [Suspect]
     Dosage: 50 MG, WEEKLY
     Route: 065
     Dates: start: 20101222, end: 20120919
  3. SULFASALAZINE [Concomitant]
     Indication: JUVENILE IDIOPATHIC ARTHRITIS
     Dosage: 1500 MG/DAY
     Dates: start: 200701, end: 20090129

REACTIONS (1)
  - Hodgkin^s disease lymphocyte predominance stage II site unspec [Not Recovered/Not Resolved]
